FAERS Safety Report 15766788 (Version 1)
Quarter: 2018Q4

REPORT INFORMATION
  Report Type: Report from Study
  Country: US (occurrence: US)
  Receive Date: 20181227
  Receipt Date: 20181227
  Transmission Date: 20190205
  Serious: Yes (Hospitalization)
  Sender: FDA-Public Use
  Company Number: US-BAYER-2018-179762

PATIENT
  Age: 67 Year
  Sex: Female

DRUGS (8)
  1. BETASERON [Suspect]
     Active Substance: INTERFERON BETA-1B
     Indication: MULTIPLE SCLEROSIS
     Dosage: 0.065 MG/0.25 ML, QOD (WEEKS 1-2)
     Route: 058
     Dates: start: 2008
  2. SIMVASTATIN. [Concomitant]
     Active Substance: SIMVASTATIN
  3. SYNTHROID [Concomitant]
     Active Substance: LEVOTHYROXINE SODIUM
  4. BETASERON [Suspect]
     Active Substance: INTERFERON BETA-1B
     Indication: RELAPSING-REMITTING MULTIPLE SCLEROSIS
     Dosage: 0.125MG/0.5ML, QOD (WEEKS 3-4)
     Route: 058
  5. FOSAMAX [Concomitant]
     Active Substance: ALENDRONATE SODIUM
  6. BETASERON [Suspect]
     Active Substance: INTERFERON BETA-1B
     Indication: RELAPSING-REMITTING MULTIPLE SCLEROSIS
     Dosage: 0.1875MG/0.75 ML, QOD (WEEKS 5-6)
     Route: 058
  7. BETASERON [Suspect]
     Active Substance: INTERFERON BETA-1B
     Indication: RELAPSING-REMITTING MULTIPLE SCLEROSIS
     Dosage: 0.25 MG/ML, QOD
     Route: 058
  8. BETASERON [Suspect]
     Active Substance: INTERFERON BETA-1B
     Indication: RELAPSING-REMITTING MULTIPLE SCLEROSIS
     Dosage: 8 MIU, QOD
     Route: 058
     Dates: start: 20060121

REACTIONS (7)
  - Migraine [Recovered/Resolved]
  - Vomiting [Recovered/Resolved]
  - Thyroidectomy [Recovered/Resolved]
  - Upper respiratory tract infection [Recovered/Resolved]
  - Product dose omission [Recovered/Resolved]
  - Product dose omission [None]
  - Malaise [None]

NARRATIVE: CASE EVENT DATE: 2008
